FAERS Safety Report 17561606 (Version 1)
Quarter: 2020Q1

REPORT INFORMATION
  Report Type: Report from Study
  Country: BR (occurrence: BR)
  Receive Date: 20200319
  Receipt Date: 20200319
  Transmission Date: 20200409
  Serious: Yes (Other)
  Sender: FDA-Public Use
  Company Number: BR-JNJFOC-20200314745

PATIENT
  Age: 48 Year
  Sex: Male

DRUGS (1)
  1. BIO-MANGUINHOS INFLIXIMABE [Suspect]
     Active Substance: INFLIXIMAB
     Indication: CROHN^S DISEASE
     Dosage: 4 VIALS
     Route: 042
     Dates: start: 20190428

REACTIONS (10)
  - Chills [Unknown]
  - Syncope [Unknown]
  - Crohn^s disease [Unknown]
  - Headache [Unknown]
  - Product use issue [Unknown]
  - Infusion related reaction [Unknown]
  - Back pain [Unknown]
  - Dyspnoea [Unknown]
  - Chest pain [Unknown]
  - Off label use [Unknown]

NARRATIVE: CASE EVENT DATE: 20190428
